FAERS Safety Report 18429769 (Version 2)
Quarter: 2020Q4

REPORT INFORMATION
  Report Type: Spontaneous
  Country: BR (occurrence: BR)
  Receive Date: 20201026
  Receipt Date: 20201130
  Transmission Date: 20210114
  Serious: Yes (Life-Threatening)
  Sender: FDA-Public Use
  Company Number: BR-PURDUE-USA-2020-0172910

PATIENT
  Age: 78 Year
  Sex: Female

DRUGS (13)
  1. INDAPEN                            /00340101/ [Concomitant]
     Indication: HYPERTENSION
     Dosage: UNK UNK, DAILY
     Route: 048
  2. PROPAFENONE. [Concomitant]
     Active Substance: PROPAFENONE
     Dosage: 150, BID [HALF TABLET IN THE MORNING AND HALF TABLET AT NIGHT]
     Route: 048
  3. RESTIVA [Suspect]
     Active Substance: BUPRENORPHINE
     Dosage: 10 MCG, Q1H (STRENGTH 10 MG)
     Route: 062
     Dates: start: 20200828, end: 20200828
  4. BENICAR [Concomitant]
     Active Substance: OLMESARTAN MEDOXOMIL
     Indication: HYPERTENSION
     Dosage: UNK UNK, DAILY
     Route: 048
  5. AMLODIPINE [Concomitant]
     Active Substance: AMLODIPINE BESYLATE
     Dosage: UNK UNK, NOCTE
     Route: 048
  6. ATENOLOL. [Concomitant]
     Active Substance: ATENOLOL
     Indication: PRODUCT USED FOR UNKNOWN INDICATION
     Dosage: 2 TABLET, NOCTE
     Route: 048
  7. AMLODIPINE [Concomitant]
     Active Substance: AMLODIPINE BESYLATE
     Indication: PRODUCT USED FOR UNKNOWN INDICATION
     Dosage: UNK UNK, NOCTE
     Route: 048
  8. INSULIN NPH                        /01223208/ [Concomitant]
     Active Substance: INSULIN BEEF
     Indication: DIABETES MELLITUS
     Dosage: UNK, TID
     Route: 042
  9. PROPAFENONE. [Concomitant]
     Active Substance: PROPAFENONE
     Indication: PRODUCT USED FOR UNKNOWN INDICATION
     Dosage: 150, BID [HALF TABLET IN THE MORNING AND HALF TABLET AT NIGHT]
     Route: 048
  10. ATENOLOL. [Concomitant]
     Active Substance: ATENOLOL
     Dosage: 2 TABLET, NOCTE
     Route: 048
  11. RESTIVA [Suspect]
     Active Substance: BUPRENORPHINE
     Indication: PAIN IN EXTREMITY
     Dosage: 10 MCG, Q1H (STRENGTH 10 MG)
     Route: 062
     Dates: start: 20200828, end: 20200828
  12. SIMVASTATIN. [Concomitant]
     Active Substance: SIMVASTATIN
     Indication: HYPERTENSION
     Dosage: UNK
     Route: 048
  13. BUFFERIN [Concomitant]
     Active Substance: ASPIRIN
     Indication: CARDIAC DISORDER
     Dosage: UNK, DAILY
     Route: 048

REACTIONS (5)
  - Feeling abnormal [Recovered/Resolved]
  - Tachyarrhythmia [Recovered/Resolved]
  - Blood glucose increased [Recovered/Resolved]
  - Blood pressure increased [Recovered/Resolved]
  - Arthralgia [Recovered/Resolved]

NARRATIVE: CASE EVENT DATE: 20200828
